FAERS Safety Report 5585121-2 (Version None)
Quarter: 2008Q1

REPORT INFORMATION
  Report Type: 
  Country: None (occurrence: None)
  Receive Date: 20080109
  Receipt Date: 20070108
  Transmission Date: 20080703
  Serious: Yes (Other)
  Sender: FDA-Public Use
  Company Number: IT-BOEHRINGER INGELHEIM PHARMACEUTICALS, INC.-2007-IT-00038IT

PATIENT

DRUGS (1)
  1. NEVIRAPINE [Suspect]
     Indication: HIV TEST POSITIVE

REACTIONS (1)
  - FOETAL DISTRESS SYNDROME [None]
